FAERS Safety Report 4868622-1 (Version None)
Quarter: 2005Q4

REPORT INFORMATION
  Report Type: 
  Country: None (occurrence: None)
  Receive Date: 20051223
  Receipt Date: 20051213
  Transmission Date: 20060501
  Serious: Yes (Congenital Anomaly)
  Sender: FDA-Public Use
  Company Number: 2005125231

PATIENT
  Sex: Female
  Weight: 2.9937 kg

DRUGS (4)
  1. LIPITOR [Suspect]
     Indication: HYPERLIPIDAEMIA
     Dosage: 30 MG (1 IN 1 D), PLACENTAL
     Route: 064
     Dates: start: 20040401, end: 20050215
  2. ORAL CONTRACEPTION NOS (ORAL CONTRACEPTIVE NOS) [Concomitant]
  3. SYNTHROID [Concomitant]
  4. PRENATAL VITAMINS (ASCORBIC ACID, BIOTIN, MINERALS NOS, NICOTINIC ACID [Concomitant]

REACTIONS (4)
  - CAESAREAN SECTION [None]
  - CLEFT PALATE [None]
  - DRUG EXPOSURE BEFORE PREGNANCY [None]
  - DRUG EXPOSURE DURING PREGNANCY [None]
